FAERS Safety Report 17545001 (Version 1)
Quarter: 2020Q1

REPORT INFORMATION
  Report Type: Spontaneous
  Country: US (occurrence: US)
  Receive Date: 20190421
  Receipt Date: 20190421
  Transmission Date: 20200409
  Serious: No
  Sender: FDA-Public Use
  Company Number: None

PATIENT
  Age: 23 Year
  Sex: Male

DRUGS (3)
  1. ZYN WINTERGREEEN 6MG POUCHES [Suspect]
     Active Substance: NICOTINE\TOBACCO LEAF
  2. MARIJUANA [Suspect]
     Active Substance: CANNABIS SATIVA SUBSP. INDICA TOP
  3. ALTRIA-JUUL-VIRGINIA TOBACCO FLAVORED 5% NICOTINE JUUL PODS [Suspect]
     Active Substance: DEVICE\NICOTINE

REACTIONS (3)
  - Intentional product use issue [None]
  - Tobacco poisoning [None]
  - Seizure [None]
